FAERS Safety Report 11158732 (Version 1)
Quarter: 2015Q2

REPORT INFORMATION
  Report Type: Spontaneous
  Country: US (occurrence: US)
  Receive Date: 20150603
  Receipt Date: 20150603
  Transmission Date: 20150821
  Serious: No
  Sender: FDA-Public Use
  Company Number: US-PFIZER INC-2015184535

PATIENT
  Age: 33 Year
  Sex: Male
  Weight: 82 kg

DRUGS (2)
  1. XELJANZ [Suspect]
     Active Substance: TOFACITINIB CITRATE
     Dosage: 5MG IN THE MORNING AND 5MG AT NIGHT
     Dates: start: 201503
  2. XELJANZ [Suspect]
     Active Substance: TOFACITINIB CITRATE
     Indication: ALOPECIA
     Dosage: 5 MG, 1X/DAY
     Dates: start: 201502

REACTIONS (2)
  - Therapeutic response unexpected [Unknown]
  - Product use issue [Unknown]

NARRATIVE: CASE EVENT DATE: 2015
